FAERS Safety Report 4960892-4 (Version None)
Quarter: 2006Q1

REPORT INFORMATION
  Report Type: 
  Country: None (occurrence: None)
  Receive Date: 20060328
  Receipt Date: 20060314
  Transmission Date: 20060701
  Serious: Yes (Hospitalization, Other)
  Sender: FDA-Public Use
  Company Number: 2006026083

PATIENT
  Age: 52 Year
  Sex: Female
  Weight: 58 kg

DRUGS (15)
  1. SULPERAZON (SULBACTAM, CEFOPERAZONE) [Suspect]
     Indication: PNEUMONIA
     Dosage: 2 GRAM (1 GRAM, 2 IN 1 D), INTRAVENOUS
     Route: 042
     Dates: start: 20060204, end: 20060209
  2. MICAFUNGIN (MICAFUNGIN) [Suspect]
     Indication: PNEUMONIA
     Dosage: 1 IN 1 D, INTRAVENOUS
     Route: 042
     Dates: start: 20060202, end: 20060212
  3. VALPROATE SODIUM [Suspect]
     Indication: EPILEPSY
     Dosage: 800 MG (400 MG, 2 IN 1 D), ORAL
     Route: 048
     Dates: start: 20060121, end: 20060212
  4. GLYCEOL (FRUCTOSE, GLYCEROL) [Concomitant]
  5. PIPERACILLIN SODIUM [Concomitant]
  6. WARFARIN SODIUM [Concomitant]
  7. NORVASC [Concomitant]
  8. MICARDIS [Concomitant]
  9. FAMOTIDINE [Concomitant]
  10. ASPARA K (ASPARTATE POTASSIUM) [Concomitant]
  11. DIGOXIN [Concomitant]
  12. VOLTAREN [Concomitant]
  13. NEO-MINOPHAGEN C (GLYCYRRHIZIC ACID, AMMONIUM SALT) [Concomitant]
  14. LASIX [Concomitant]
  15. GLUCOSE (GLUCOSE) [Concomitant]

REACTIONS (8)
  - APHASIA [None]
  - BRAIN HERNIATION [None]
  - BRAIN OEDEMA [None]
  - CAROTID ARTERY OCCLUSION [None]
  - CEREBRAL INFARCTION [None]
  - HEMIPARESIS [None]
  - THERMAL BURN [None]
  - TOXIC EPIDERMAL NECROLYSIS [None]
